FAERS Safety Report 10488052 (Version 1)
Quarter: 2014Q4

REPORT INFORMATION
  Report Type: Spontaneous
  Country: GB (occurrence: GB)
  Receive Date: 20141001
  Receipt Date: 20141001
  Transmission Date: 20150528
  Serious: Yes (Other)
  Sender: FDA-Public Use
  Company Number: PHHY2014GB126151

PATIENT
  Age: 83 Year
  Sex: Female

DRUGS (10)
  1. PRAVASTATIN [Suspect]
     Active Substance: PRAVASTATIN\PRAVASTATIN SODIUM
     Dates: start: 20140812, end: 20140909
  2. ADCAL [Concomitant]
     Dates: start: 20140723, end: 20140723
  3. DEPO-MEDRONE [Concomitant]
     Active Substance: METHYLPREDNISOLONE
     Dates: start: 20140715, end: 20140716
  4. ALENDRONIC ACID [Concomitant]
     Active Substance: ALENDRONIC ACID
     Dates: start: 20140723
  5. TRAMCET [Concomitant]
     Active Substance: ACETAMINOPHEN\TRAMADOL
     Dates: start: 20140507
  6. FYBOGEL [Concomitant]
     Active Substance: PLANTAGO OVATA SEED
     Dates: start: 20140723, end: 20140723
  7. ATORVASTATIN [Concomitant]
     Active Substance: ATORVASTATIN
     Dates: start: 20140723, end: 20140820
  8. IBUPROFEN. [Concomitant]
     Active Substance: IBUPROFEN
     Dates: start: 20140812, end: 20140909
  9. LANSOPRAZOLE. [Concomitant]
     Active Substance: LANSOPRAZOLE
     Dates: start: 20140723, end: 20140820
  10. ASPIRIN. [Concomitant]
     Active Substance: ASPIRIN
     Dates: start: 20140723, end: 20140820

REACTIONS (1)
  - Tremor [Recovered/Resolved]

NARRATIVE: CASE EVENT DATE: 20140902
